FAERS Safety Report 8980078 (Version 1)
Quarter: 2012Q4

REPORT INFORMATION
  Report Type: 
  Country: DE (occurrence: DE)
  Receive Date: 20121221
  Receipt Date: 20121221
  Transmission Date: 20130627
  Serious: Yes (Life-Threatening, Hospitalization, Other)
  Sender: FDA-Public Use
  Company Number: GXKR2012DE003920

PATIENT

DRUGS (2)
  1. ACETYLSALICYLIC ACID [Suspect]
     Indication: CORONARY ARTERY DISEASE
     Dosage: 100 mg, QD
     Route: 048
     Dates: end: 20121213
  2. PLAVIX [Suspect]
     Indication: MYOCARDIAL INFARCTION
     Dosage: 75 mg, QD
     Route: 048
     Dates: end: 20121213

REACTIONS (1)
  - Cerebral haemorrhage [Not Recovered/Not Resolved]
